FAERS Safety Report 18560777 (Version 2)
Quarter: 2021Q1

REPORT INFORMATION
  Report Type: Spontaneous
  Country: US (occurrence: US)
  Receive Date: 20201130
  Receipt Date: 20210122
  Transmission Date: 20210419
  Serious: Yes (Other)
  Sender: FDA-Public Use
  Company Number: US-009507513-2011USA015343

PATIENT
  Age: 24 Year
  Sex: Female
  Weight: 80.27 kg

DRUGS (2)
  1. NEXPLANON [Suspect]
     Active Substance: ETONOGESTREL
     Dosage: 1 IMPLANT (IN LEFT ARM)
     Route: 059
     Dates: end: 20201013
  2. NEXPLANON [Suspect]
     Active Substance: ETONOGESTREL
     Indication: CONTRACEPTION
     Dosage: 1 IMPLANT FOR 3 YEARS (INSERTED IN RIGHT ARM)
     Route: 059
     Dates: start: 20201013

REACTIONS (5)
  - Device placement issue [Not Recovered/Not Resolved]
  - Impaired healing [Recovering/Resolving]
  - Device dislocation [Not Recovered/Not Resolved]
  - Implant site pain [Recovered/Resolved]
  - Implant site pain [Not Recovered/Not Resolved]

NARRATIVE: CASE EVENT DATE: 2020
